FAERS Safety Report 24422629 (Version 1)
Quarter: 2024Q4

REPORT INFORMATION
  Report Type: Spontaneous
  Country: US (occurrence: None)
  Receive Date: 20241009
  Receipt Date: 20241009
  Transmission Date: 20250114
  Serious: Yes (Death)
  Sender: Public
  Company Number: None

PATIENT
  Age: 92 Year
  Sex: Male

DRUGS (1)
  1. COLLAGENASE SANTYL [Suspect]
     Active Substance: COLLAGENASE CLOSTRIDIUM HISTOLYTICUM
     Dosage: OTHER QUANTITY : 250U/GM ONITMENT 30GM ;?FREQUENCY : DAILY;?
     Dates: start: 20240917

REACTIONS (1)
  - Death [None]

NARRATIVE: CASE EVENT DATE: 20240924
